FAERS Safety Report 7223708-1 (Version None)
Quarter: 2011Q1

REPORT INFORMATION
  Report Type: 
  Country: None (occurrence: None)
  Receive Date: 20110112
  Receipt Date: 20101022
  Transmission Date: 20110831
  Serious: No
  Sender: FDA-Public Use
  Company Number: US-ALLERGAN-1013638US

PATIENT
  Age: 69 Year
  Sex: Female

DRUGS (3)
  1. RESTASIS [Suspect]
     Indication: DRY EYE
     Dosage: 1 GTT, BID
     Route: 047
     Dates: start: 20101013
  2. OCTAVIA [Concomitant]
     Indication: DRY EYE
     Dosage: 1 GTT, TID
     Route: 047
  3. GETEAL GEL [Concomitant]
     Indication: DRY EYE
     Dosage: 1 GTT, QHS
     Route: 047

REACTIONS (1)
  - HEADACHE [None]
